FAERS Safety Report 8314688-6 (Version None)
Quarter: 2012Q2

REPORT INFORMATION
  Report Type: 
  Country: None (occurrence: None)
  Receive Date: 20120426
  Receipt Date: 20120417
  Transmission Date: 20120825
  Serious: Yes (Other)
  Sender: FDA-Public Use
  Company Number: US-ELI_LILLY_AND_COMPANY-US201204006034

PATIENT
  Age: 62 Year
  Sex: Female

DRUGS (10)
  1. ATENOLOL [Concomitant]
  2. VICODIN [Concomitant]
  3. CYMBALTA [Suspect]
     Dosage: 30 MG, QD
     Dates: start: 20120301
  4. CYMBALTA [Suspect]
     Dosage: 30 MG, QD
  5. KLONOPIN [Concomitant]
  6. CYMBALTA [Suspect]
     Indication: BACK PAIN
     Dosage: 20 MG, QD
  7. CYMBALTA [Suspect]
     Dosage: 20 MG, QD
     Dates: end: 20120401
  8. CYMBALTA [Suspect]
     Dosage: 60 MG, QD
     Dates: end: 20120301
  9. CYMBALTA [Suspect]
     Dosage: 20 MG, QOD
     Dates: start: 20120401
  10. BACLOFEN [Concomitant]

REACTIONS (12)
  - DRY SKIN [None]
  - DRY MOUTH [None]
  - DIZZINESS [None]
  - DRUG INEFFECTIVE [None]
  - PRURITUS [None]
  - SOMNOLENCE [None]
  - NAUSEA [None]
  - DERMATITIS BULLOUS [None]
  - MUCOSAL INFLAMMATION [None]
  - RASH PRURITIC [None]
  - RASH [None]
  - DRUG WITHDRAWAL SYNDROME [None]
